FAERS Safety Report 7151246-3 (Version None)
Quarter: 2010Q4

REPORT INFORMATION
  Report Type: 
  Country: None (occurrence: None)
  Receive Date: 20101124
  Receipt Date: 20101116
  Transmission Date: 20110411
  Serious: Yes (Other)
  Sender: FDA-Public Use
  Company Number: DSA_44017_2010

PATIENT
  Sex: Female
  Weight: 95.2554 kg

DRUGS (5)
  1. WELLBUTRIN XL [Suspect]
     Indication: PRODUCT USED FOR UNKNOWN INDICATION
     Dosage: (100 MG QD ORAL), (300 MG QD ORAL), (DF)
     Route: 048
     Dates: start: 20100821, end: 20100827
  2. WELLBUTRIN XL [Suspect]
     Indication: PRODUCT USED FOR UNKNOWN INDICATION
     Dosage: (100 MG QD ORAL), (300 MG QD ORAL), (DF)
     Route: 048
     Dates: start: 20100828, end: 20100913
  3. WELLBUTRIN XL [Suspect]
     Indication: PRODUCT USED FOR UNKNOWN INDICATION
     Dosage: (100 MG QD ORAL), (300 MG QD ORAL), (DF)
     Route: 048
     Dates: start: 20100101
  4. LEXAPRO [Concomitant]
  5. SYNTHROID [Concomitant]

REACTIONS (1)
  - HYPERSENSITIVITY [None]
